FAERS Safety Report 17171332 (Version 1)
Quarter: 2019Q4

REPORT INFORMATION
  Report Type: Spontaneous
  Country: US (occurrence: US)
  Receive Date: 20191218
  Receipt Date: 20191218
  Transmission Date: 20200122
  Serious: No
  Sender: FDA-Public Use
  Company Number: US-SUPERNUS PHARMACEUTICALS, INC.-2019SUP00418

PATIENT
  Age: 56 Year
  Sex: Female
  Weight: 53.06 kg

DRUGS (2)
  1. UNSPECIFIED HORMONE REPLACEMENT THERAPY [Suspect]
     Active Substance: UNSPECIFIED INGREDIENT
     Dosage: UNK
  2. TROKENDI XR [Suspect]
     Active Substance: TOPIRAMATE
     Indication: MIGRAINE
     Dosage: 200 MG, 1X/DAY IN THE EVENING
     Route: 048
     Dates: start: 201903

REACTIONS (7)
  - Alopecia [Not Recovered/Not Resolved]
  - Product dose omission [Recovered/Resolved]
  - Headache [Recovered/Resolved]
  - Disorientation [Recovered/Resolved]
  - Skin burning sensation [Not Recovered/Not Resolved]
  - Paraesthesia [Not Recovered/Not Resolved]
  - Weight decreased [Recovered/Resolved]

NARRATIVE: CASE EVENT DATE: 2019
